FAERS Safety Report 8487843-2 (Version None)
Quarter: 2012Q2

REPORT INFORMATION
  Report Type: 
  Country: None (occurrence: None)
  Receive Date: 20120402
  Receipt Date: 20110223
  Transmission Date: 20120825
  Serious: Yes (Other)
  Sender: FDA-Public Use
  Company Number: PHHY2011US15458

PATIENT
  Sex: Female

DRUGS (4)
  1. CRESTOR (ROSUVASTATIN CALCIUM) , 5 MG [Concomitant]
  2. CLONIDINE HCL [Suspect]
     Dosage: 0.2MG , TRANSDERMAL, ORAL
     Route: 062
  3. STATIN [Concomitant]
  4. EXFORGE [Suspect]
     Dosage: 5 MG, (VALSARTAN UNKMG AND AMLODIPINE 5MG), ORAL
     Route: 048

REACTIONS (4)
  - BLOOD PRESSURE DECREASED [None]
  - WRONG TECHNIQUE IN DRUG USAGE PROCESS [None]
  - FEELING ABNORMAL [None]
  - BLOOD PRESSURE INADEQUATELY CONTROLLED [None]
